FAERS Safety Report 23586099 (Version 1)
Quarter: 2024Q1

REPORT INFORMATION
  Report Type: Spontaneous
  Country: US (occurrence: None)
  Receive Date: 20240301
  Receipt Date: 20240301
  Transmission Date: 20240410
  Serious: Yes (Hospitalization)
  Sender: FDA-Public Use
  Company Number: None

PATIENT
  Age: 56 Year
  Sex: Male
  Weight: 130.7 kg

DRUGS (1)
  1. CISPLATIN [Suspect]
     Active Substance: CISPLATIN
     Dates: end: 20240109

REACTIONS (16)
  - Intentional dose omission [None]
  - Nausea [None]
  - Vomiting [None]
  - Moaning [None]
  - Unresponsive to stimuli [None]
  - Oxygen saturation decreased [None]
  - Pain in extremity [None]
  - Toxicity to various agents [None]
  - Infection [None]
  - Hyperkalaemia [None]
  - Tonsillar hypertrophy [None]
  - Obstructive airways disorder [None]
  - Mental status changes [None]
  - Oropharyngeal pain [None]
  - Hypophagia [None]
  - Treatment delayed [None]

NARRATIVE: CASE EVENT DATE: 20240111
